FAERS Safety Report 19355401 (Version 1)
Quarter: 2021Q2

REPORT INFORMATION
  Report Type: Spontaneous
  Country: PL (occurrence: PL)
  Receive Date: 20210531
  Receipt Date: 20210531
  Transmission Date: 20210717
  Serious: Yes (Other)
  Sender: FDA-Public Use
  Company Number: PL-ALLERGAN-2120669US

PATIENT
  Sex: Female

DRUGS (4)
  1. DEBRETIN [Concomitant]
  2. PYLERA [Suspect]
     Active Substance: BISMUTH SUBCITRATE POTASSIUM\METRONIDAZOLE\TETRACYCLINE HYDROCHLORIDE
     Indication: HELICOBACTER INFECTION
     Dosage: 2 DF, Q6HR
     Route: 048
     Dates: start: 20171201, end: 20171210
  3. ENTEROL [Concomitant]
  4. EMANERA [Concomitant]
     Active Substance: ESOMEPRAZOLE MAGNESIUM

REACTIONS (8)
  - Laryngeal oedema [Recovering/Resolving]
  - Incorrect dose administered [Unknown]
  - Oesophageal pain [Recovering/Resolving]
  - Lip swelling [Recovering/Resolving]
  - Oropharyngeal pain [Recovering/Resolving]
  - Dyspepsia [Recovering/Resolving]
  - Chromaturia [Recovering/Resolving]
  - Faeces discoloured [Recovering/Resolving]

NARRATIVE: CASE EVENT DATE: 20171201
